FAERS Safety Report 17521803 (Version 1)
Quarter: 2020Q1

REPORT INFORMATION
  Report Type: Spontaneous
  Country: PT (occurrence: PT)
  Receive Date: 20200310
  Receipt Date: 20200310
  Transmission Date: 20200409
  Serious: Yes (Other)
  Sender: FDA-Public Use
  Company Number: PT-SA-2020SA060356

PATIENT
  Age: 56 Year
  Sex: Male
  Weight: 77.5 kg

DRUGS (14)
  1. PREDNISOLONE. [Concomitant]
     Active Substance: PREDNISOLONE
     Dates: start: 20140630
  2. NIFEDIPINE. [Concomitant]
     Active Substance: NIFEDIPINE
  3. CLONIDINE. [Concomitant]
     Active Substance: CLONIDINE
  4. VALGANCICLOVIR. [Concomitant]
     Active Substance: VALGANCICLOVIR
  5. THYMOGLOBULIN [Suspect]
     Active Substance: LAPINE T-LYMPHOCYTE IMMUNE GLOBULIN
     Indication: IMMUNOSUPPRESSION
     Dosage: 1400MG 7 DAYS
     Route: 042
     Dates: start: 20140615, end: 20140621
  6. COTRIMOXAZOL [Concomitant]
     Active Substance: SULFAMETHOXAZOLE\TRIMETHOPRIM
  7. TAMSULOSIN [Concomitant]
     Active Substance: TAMSULOSIN
  8. LORAZEPAM. [Concomitant]
     Active Substance: LORAZEPAM
  9. CARVEDILOL. [Concomitant]
     Active Substance: CARVEDILOL
  10. PANTOPRAZOLE [Concomitant]
     Active Substance: PANTOPRAZOLE
     Dosage: FOR 7 DAYS
  11. NYSTATIN. [Concomitant]
     Active Substance: NYSTATIN
     Route: 048
  12. TACROLIMUS. [Concomitant]
     Active Substance: TACROLIMUS
  13. EPOETIN BETA [Concomitant]
     Active Substance: ERYTHROPOIETIN
  14. MYCOPHENOLATE MOFETIL. [Concomitant]
     Active Substance: MYCOPHENOLATE MOFETIL

REACTIONS (1)
  - Haemolytic anaemia [Recovered/Resolved]

NARRATIVE: CASE EVENT DATE: 20140701
